FAERS Safety Report 6853504-6 (Version None)
Quarter: 2010Q3

REPORT INFORMATION
  Report Type: 
  Country: None (occurrence: None)
  Receive Date: 20100717
  Receipt Date: 20080125
  Transmission Date: 20110219
  Serious: No
  Sender: FDA-Public Use
  Company Number: US-PFIZER INC-2007100871

PATIENT
  Sex: Female

DRUGS (1)
  1. CHANTIX [Suspect]
     Dates: start: 20071113

REACTIONS (5)
  - BACK PAIN [None]
  - DEPRESSION [None]
  - NAUSEA [None]
  - NERVOUSNESS [None]
  - PAIN IN EXTREMITY [None]
